FAERS Safety Report 25044792 (Version 1)
Quarter: 2025Q1

REPORT INFORMATION
  Report Type: Report from Study
  Country: US (occurrence: US)
  Receive Date: 20250306
  Receipt Date: 20250306
  Transmission Date: 20250409
  Serious: Yes (Other)
  Sender: TEVA
  Company Number: US-TEVA-VS-3304345

PATIENT
  Age: 9 Year
  Sex: Female

DRUGS (1)
  1. ADENOSINE [Suspect]
     Active Substance: ADENOSINE
     Indication: Supraventricular tachycardia
     Route: 042

REACTIONS (2)
  - Sinus arrest [Recovered/Resolved]
  - Ventricular extrasystoles [Recovered/Resolved]
